FAERS Safety Report 4851667-5 (Version None)
Quarter: 2005Q4

REPORT INFORMATION
  Report Type: 
  Country: None (occurrence: None)
  Receive Date: 20051213
  Receipt Date: 20051128
  Transmission Date: 20060501
  Serious: Yes (Other)
  Sender: FDA-Public Use
  Company Number: PHEH2005US12934

PATIENT
  Age: 64 Year
  Sex: Female

DRUGS (5)
  1. CLOZARIL [Suspect]
     Indication: PSYCHOTIC DISORDER
     Dosage: 100MG QAM, 150MG QHS
     Route: 048
     Dates: start: 19991117
  2. CLOZARIL [Suspect]
     Dosage: ^GRADUALLY^ DECREASING
  3. RISPERDAL [Concomitant]
     Indication: PSYCHOTIC DISORDER
     Dosage: 2MG QAM, 4MG QHS
     Route: 048
  4. PAXIL [Concomitant]
     Indication: DEPRESSION
     Dosage: 25 MG, QD
     Route: 048
  5. ATIVAN [Concomitant]
     Indication: ANXIETY
     Dosage: 1 MG, QHS
     Route: 048

REACTIONS (1)
  - HEPATITIS C [None]
